FAERS Safety Report 6435397-4 (Version None)
Quarter: 2009Q4

REPORT INFORMATION
  Report Type: 
  Country: None (occurrence: None)
  Receive Date: 20091110
  Receipt Date: 20091029
  Transmission Date: 20100525
  Serious: Yes (Death, Hospitalization)
  Sender: FDA-Public Use
  Company Number: FR-GENENTECH-293525

PATIENT
  Age: 34 Year
  Sex: Female

DRUGS (1)
  1. MABTHERA [Suspect]
     Indication: RHEUMATOID ARTHRITIS
     Dosage: 1 G, Q15D
     Route: 042
     Dates: start: 20090301, end: 20090918

REACTIONS (2)
  - CARDIAC ARREST [None]
  - CYTOLYTIC HEPATITIS [None]
